FAERS Safety Report 10044702 (Version 1)
Quarter: 2014Q1

REPORT INFORMATION
  Report Type: Spontaneous
  Country: US (occurrence: US)
  Receive Date: 20140328
  Receipt Date: 20140328
  Transmission Date: 20141002
  Serious: No
  Sender: FDA-Public Use
  Company Number: US-009507513-1403USA012587

PATIENT
  Sex: Male

DRUGS (1)
  1. NUVARING [Suspect]
     Dosage: UNK

REACTIONS (2)
  - Ejaculation failure [Unknown]
  - Exposure via body fluid [Unknown]
